FAERS Safety Report 24279266 (Version 3)
Quarter: 2024Q4

REPORT INFORMATION
  Report Type: Spontaneous
  Country: US (occurrence: US)
  Receive Date: 20240903
  Receipt Date: 20241110
  Transmission Date: 20250115
  Serious: No
  Sender: JOHNSON AND JOHNSON
  Company Number: US-ViiV Healthcare Limited-115443

PATIENT
  Age: 55 Year
  Sex: Male

DRUGS (2)
  1. RILPIVIRINE [Suspect]
     Active Substance: RILPIVIRINE
     Indication: Product used for unknown indication
     Dosage: UNK UNK, Q2M
     Route: 030
     Dates: start: 20240221, end: 20240806
  2. CABOTEGRAVIR [Suspect]
     Active Substance: CABOTEGRAVIR
     Indication: Product used for unknown indication
     Dosage: UNK UNK, Q2M
     Route: 030
     Dates: start: 20240221, end: 20240806

REACTIONS (2)
  - Viral load increased [Recovered/Resolved]
  - Pathogen resistance [Unknown]

NARRATIVE: CASE EVENT DATE: 20240806
